FAERS Safety Report 8601443-2 (Version None)
Quarter: 2012Q3

REPORT INFORMATION
  Report Type: 
  Country: None (occurrence: None)
  Receive Date: 20120817
  Receipt Date: 20110927
  Transmission Date: 20120928
  Serious: Yes (Other)
  Sender: FDA-Public Use
  Company Number: US-BRISTOL-MYERS SQUIBB COMPANY-15946940

PATIENT
  Age: 53 Year
  Sex: Male

DRUGS (7)
  1. AMLODIPINE [Concomitant]
  2. MAGNESIUM [Concomitant]
  3. LIPITOR [Concomitant]
  4. SPRYCEL [Suspect]
     Dates: start: 20110601, end: 20110922
  5. LEXAPRO [Concomitant]
  6. FISH OIL [Concomitant]
  7. VITAMIN D [Concomitant]

REACTIONS (7)
  - PLATELET COUNT DECREASED [None]
  - CONTUSION [None]
  - FATIGUE [None]
  - RED BLOOD CELL COUNT DECREASED [None]
  - DIARRHOEA [None]
  - WHITE BLOOD CELL COUNT DECREASED [None]
  - DEHYDRATION [None]
